FAERS Safety Report 4462341-1 (Version None)
Quarter: 2004Q3

REPORT INFORMATION
  Report Type: 
  Country: None (occurrence: None)
  Receive Date: 20040924
  Receipt Date: 20040915
  Transmission Date: 20050211
  Serious: Yes (Other)
  Sender: FDA-Public Use
  Company Number: 2004-07-0637

PATIENT
  Age: 87 Year
  Sex: Male

DRUGS (1)
  1. ALBUTEROL [Suspect]
     Dosage: PRN ORAL AER INH
     Route: 055
     Dates: start: 19960101

REACTIONS (3)
  - CATARACT OPERATION [None]
  - DRUG EFFECT DECREASED [None]
  - DYSPNOEA [None]
